FAERS Safety Report 9344544 (Version 1)
Quarter: 2013Q2

REPORT INFORMATION
  Report Type: Spontaneous
  Country: JP (occurrence: JP)
  Receive Date: 20130612
  Receipt Date: 20130612
  Transmission Date: 20140414
  Serious: Yes (Other)
  Sender: FDA-Public Use
  Company Number: JP-ACTAVIS-2013-10158

PATIENT
  Age: 56 Year
  Sex: Male

DRUGS (3)
  1. CLOBETASOL PROPIONATE (AMALLC) [Suspect]
     Indication: PSORIASIS
     Dosage: 4-6 G DAILY
     Route: 061
  2. CALCIPOTRIOL [Concomitant]
     Indication: PSORIASIS
     Dosage: 3-5 G DAILY
     Route: 065
  3. CICLOSPORIN [Concomitant]
     Indication: PSORIASIS
     Dosage: UNK2-3 MG/KG DAILY
     Route: 065

REACTIONS (4)
  - Osteonecrosis [Recovering/Resolving]
  - Skin atrophy [Unknown]
  - Blood cholesterol increased [Unknown]
  - Blood triglycerides increased [Unknown]
